FAERS Safety Report 11178739 (Version 2)
Quarter: 2015Q3

REPORT INFORMATION
  Report Type: Report from Study
  Country: PL (occurrence: PL)
  Receive Date: 20150610
  Receipt Date: 20150727
  Transmission Date: 20151125
  Serious: Yes (Hospitalization)
  Sender: FDA-Public Use
  Company Number: PL-BAYER-2015-319327

PATIENT
  Sex: Female

DRUGS (1)
  1. BETAFERON [Suspect]
     Active Substance: INTERFERON BETA-1B
     Indication: MULTIPLE SCLEROSIS
     Dosage: 250 UNK, QOD
     Route: 058
     Dates: start: 20150304, end: 201507

REACTIONS (4)
  - Nausea [None]
  - Loss of consciousness [None]
  - Malaise [None]
  - Headache [None]

NARRATIVE: CASE EVENT DATE: 20150524
